FAERS Safety Report 15149435 (Version 1)
Quarter: 2018Q3

REPORT INFORMATION
  Report Type: Spontaneous
  Country: FR (occurrence: FR)
  Receive Date: 20180716
  Receipt Date: 20180716
  Transmission Date: 20181010
  Serious: Yes (Other)
  Sender: FDA-Public Use
  Company Number: FR-PFIZER INC-2018279015

PATIENT
  Age: 84 Year
  Sex: Male

DRUGS (16)
  1. LAROXYL [Suspect]
     Active Substance: AMITRIPTYLINE HYDROCHLORIDE
     Dosage: 25 MG, SINGLE
     Route: 048
     Dates: start: 20180525, end: 20180525
  2. CORDARONE [Concomitant]
     Active Substance: AMIODARONE HYDROCHLORIDE
     Dosage: UNK
  3. PAROXETINE. [Concomitant]
     Active Substance: PAROXETINE
     Dosage: UNK
  4. KARDEGIC [Concomitant]
     Active Substance: ASPIRIN DL-LYSINE
     Dosage: UNK
  5. AMLODIPINE [Suspect]
     Active Substance: AMLODIPINE BESYLATE
     Dosage: 10 MG, SINGLE
     Route: 048
     Dates: start: 20180525, end: 20180525
  6. DAFALGAN [Concomitant]
     Active Substance: ACETAMINOPHEN
     Dosage: UNK
  7. LOVENOX [Concomitant]
     Active Substance: ENOXAPARIN SODIUM
     Dosage: UNK
  8. LASILIX [Concomitant]
     Active Substance: FUROSEMIDE
     Dosage: UNK
  9. UVEDOSE [Concomitant]
     Active Substance: CHOLECALCIFEROL
  10. METFORMINE [Suspect]
     Active Substance: METFORMIN HYDROCHLORIDE
     Dosage: 500 MG, SINGLE
     Route: 048
     Dates: start: 20180525, end: 20180525
  11. LARGACTIL /00011901/ [Suspect]
     Active Substance: CHLORPROMAZINE
     Dosage: 50 MG, SINGLE
     Route: 048
     Dates: start: 20180525, end: 20180525
  12. PREGABALINE [Concomitant]
     Active Substance: PREGABALIN
     Dosage: UNK
  13. RAMIPRIL. [Concomitant]
     Active Substance: RAMIPRIL
     Dosage: UNK
  14. RIVASTIGMINE. [Concomitant]
     Active Substance: RIVASTIGMINE
     Dosage: UNK
  15. PERINDOPRIL [Suspect]
     Active Substance: PERINDOPRIL
     Dosage: 1 DF, SINGLE
     Dates: start: 20180525, end: 20180525
  16. MACROGOL STEARATE [Concomitant]
     Active Substance: POLYETHYLENE GLYCOLS
     Dosage: UNK

REACTIONS (3)
  - Fall [Recovered/Resolved]
  - Somnolence [Recovered/Resolved]
  - Drug administration error [Unknown]

NARRATIVE: CASE EVENT DATE: 20180525
